FAERS Safety Report 19056680 (Version 1)
Quarter: 2021Q1

REPORT INFORMATION
  Report Type: Spontaneous
  Country: US (occurrence: US)
  Receive Date: 20210325
  Receipt Date: 20210325
  Transmission Date: 20210420
  Serious: Yes (Life-Threatening)
  Sender: FDA-Public Use
  Company Number: None

PATIENT
  Age: 61 Year
  Sex: Male
  Weight: 46 kg

DRUGS (1)
  1. ALTEPLASE INJECTION [Suspect]
     Active Substance: ALTEPLASE
     Indication: ISCHAEMIC STROKE
     Dosage: ?          OTHER FREQUENCY:ONCE;?
     Route: 041
     Dates: start: 20200210, end: 20200210

REACTIONS (3)
  - Cerebral haemorrhage [None]
  - NIH stroke scale score increased [None]
  - Ischaemic stroke [None]

NARRATIVE: CASE EVENT DATE: 20200210
